FAERS Safety Report 22313194 (Version 1)
Quarter: 2023Q2

REPORT INFORMATION
  Report Type: Spontaneous
  Country: FR (occurrence: FR)
  Receive Date: 20230512
  Receipt Date: 20230512
  Transmission Date: 20230722
  Serious: Yes (Other)
  Sender: FDA-Public Use
  Company Number: None

PATIENT
  Age: 26 Year
  Sex: Female

DRUGS (3)
  1. SILDENAFIL [Suspect]
     Active Substance: SILDENAFIL
     Indication: Weight decreased
     Dosage: 1 DF, BID, 2 SACHET DAILY
     Route: 048
     Dates: start: 20230318, end: 20230401
  2. SIBUTRAMINE [Suspect]
     Active Substance: SIBUTRAMINE
     Indication: Weight decreased
     Dosage: 1 DF, BID,2 SACHETS DAILY
     Route: 048
     Dates: start: 20230318, end: 20230401
  3. TRANDATE [Concomitant]
     Active Substance: LABETALOL HYDROCHLORIDE
     Indication: Hypertension
     Dosage: 400 MILLIGRAM, QD
     Route: 048

REACTIONS (3)
  - Condition aggravated [Recovered/Resolved]
  - Hypertension [Recovered/Resolved]
  - Headache [Recovered/Resolved]
